FAERS Safety Report 16151685 (Version 1)
Quarter: 2019Q2

REPORT INFORMATION
  Report Type: Spontaneous
  Country: US (occurrence: US)
  Receive Date: 20190403
  Receipt Date: 20190403
  Transmission Date: 20190711
  Serious: Yes (Hospitalization)
  Sender: FDA-Public Use
  Company Number: US-PARI RESPIRATORY EQUIPMENT, INC.-2019PAR00023

PATIENT
  Sex: Male

DRUGS (13)
  1. PANTOPRAZOLE SODIUM. [Concomitant]
     Active Substance: PANTOPRAZOLE SODIUM
  2. LEVOFLOXACIN. [Concomitant]
     Active Substance: LEVOFLOXACIN
  3. UNSPECIFIED MULTIVITAMINS [Concomitant]
  4. AZITHROMYCIN ANHYDROUS. [Concomitant]
     Active Substance: AZITHROMYCIN ANHYDROUS
  5. SODIUM CHLORIDE. [Concomitant]
     Active Substance: SODIUM CHLORIDE
  6. PHYTONADIONE. [Concomitant]
     Active Substance: PHYTONADIONE
  7. VITAMIN E [Concomitant]
     Active Substance: .ALPHA.-TOCOPHEROL
  8. VENTOLIN HFA [Concomitant]
     Active Substance: ALBUTEROL SULFATE
  9. CREON [Concomitant]
     Active Substance: PANCRELIPASE AMYLASE\PANCRELIPASE LIPASE\PANCRELIPASE PROTEASE
  10. KITABIS PAK [Suspect]
     Active Substance: TOBRAMYCIN
     Indication: CYSTIC FIBROSIS
     Dosage: 300 MG, 2X/DAY, 28 DAYS ON AND 28 DAYS OFF
  11. CYPROHEPTADINE HCL [Concomitant]
     Active Substance: CYPROHEPTADINE HYDROCHLORIDE
  12. FERROUS SULFATE. [Concomitant]
     Active Substance: FERROUS SULFATE
  13. FLOVENT HFA [Concomitant]
     Active Substance: FLUTICASONE PROPIONATE

REACTIONS (1)
  - Infection [Unknown]
